FAERS Safety Report 17720902 (Version 1)
Quarter: 2020Q2

REPORT INFORMATION
  Report Type: Spontaneous
  Country: US (occurrence: US)
  Receive Date: 20200428
  Receipt Date: 20200428
  Transmission Date: 20200714
  Serious: Yes (Death)
  Sender: FDA-Public Use
  Company Number: US-ROCHE-2280005

PATIENT
  Age: 52 Year
  Sex: Female

DRUGS (3)
  1. PACLITAXEL. [Concomitant]
     Active Substance: PACLITAXEL
     Indication: NON-SMALL CELL LUNG CANCER METASTATIC
     Route: 065
  2. CARBOPLATIN. [Concomitant]
     Active Substance: CARBOPLATIN
     Indication: NON-SMALL CELL LUNG CANCER METASTATIC
     Route: 065
  3. AVASTIN [Suspect]
     Active Substance: BEVACIZUMAB
     Indication: NON-SMALL CELL LUNG CANCER METASTATIC
     Dosage: ON HER 5TH CYCLE
     Route: 042
     Dates: start: 2018

REACTIONS (1)
  - Haemoptysis [Fatal]

NARRATIVE: CASE EVENT DATE: 20190228
